FAERS Safety Report 7152460-3 (Version None)
Quarter: 2010Q4

REPORT INFORMATION
  Report Type: 
  Country: None (occurrence: None)
  Receive Date: 20101208
  Receipt Date: 20101208
  Transmission Date: 20110411
  Serious: Yes (Life-Threatening, Hospitalization)
  Sender: FDA-Public Use
  Company Number: None

PATIENT
  Age: 83 Year
  Sex: Male
  Weight: 73.5 kg

DRUGS (2)
  1. AMITRIPTYLINE HCL [Suspect]
     Indication: DIABETIC NEUROPATHY
     Dosage: 10 MG HS PO
     Route: 048
  2. SIMVASTATIN [Suspect]
     Indication: HYPERCHOLESTEROLAEMIA
     Dosage: 40 MG DAILY PO
     Route: 048

REACTIONS (3)
  - ACUTE HEPATIC FAILURE [None]
  - CHOLANGITIS [None]
  - RENAL INJURY [None]
